FAERS Safety Report 11724653 (Version 1)
Quarter: 2015Q4

REPORT INFORMATION
  Report Type: Spontaneous
  Country: US (occurrence: US)
  Receive Date: 20151111
  Receipt Date: 20151111
  Transmission Date: 20160304
  Serious: No
  Sender: FDA-Public Use
  Company Number: US-UCBSA-2014018426

PATIENT
  Sex: Male
  Weight: 108.84 kg

DRUGS (6)
  1. ESLICARBAZEPINE ACETATE [Interacting]
     Active Substance: ESLICARBAZEPINE ACETATE
     Indication: GENERALISED TONIC-CLONIC SEIZURE
     Dosage: 400 MG, ONCE DAILY (QD)
     Route: 048
     Dates: start: 201408, end: 201409
  2. VIMPAT [Interacting]
     Active Substance: LACOSAMIDE
     Dosage: 150 MG, 2X/DAY (BID)
  3. ESLICARBAZEPINE ACETATE [Interacting]
     Active Substance: ESLICARBAZEPINE ACETATE
     Dosage: 800 MG, ONCE DAILY (QD)
     Route: 048
     Dates: start: 201409
  4. KEPPRA [Concomitant]
     Active Substance: LEVETIRACETAM
     Indication: PRODUCT USED FOR UNKNOWN INDICATION
     Dosage: UNK
  5. VIMPAT [Suspect]
     Active Substance: LACOSAMIDE
     Indication: SEIZURE
     Dosage: 250 MG, 2X/DAY (BID)
  6. DEPAKOTE [Concomitant]
     Active Substance: DIVALPROEX SODIUM
     Indication: PRODUCT USED FOR UNKNOWN INDICATION
     Dosage: UNK

REACTIONS (5)
  - Migraine [Recovering/Resolving]
  - Overdose [Unknown]
  - Drug interaction [Recovering/Resolving]
  - Diplopia [Recovering/Resolving]
  - Off label use [Unknown]

NARRATIVE: CASE EVENT DATE: 2014
